FAERS Safety Report 8777858 (Version 3)
Quarter: 2012Q4

REPORT INFORMATION
  Report Type: 
  Country: SE (occurrence: SE)
  Receive Date: 20120911
  Receipt Date: 20121018
  Transmission Date: 20130627
  Serious: Yes (Hospitalization, Other)
  Sender: FDA-Public Use
  Company Number: PHHO2012SE012692

PATIENT
  Age: 72 Year
  Sex: Female
  Weight: 56.51 kg

DRUGS (15)
  1. LETROZOLE [Suspect]
     Indication: BREAST CANCER
     Dosage: 2.5 mg, QD
     Route: 048
     Dates: start: 20120426, end: 20120426
  2. LETROZOLE [Interacting]
     Dosage: 2.5 mg, QD
     Route: 048
     Dates: start: 20120507
  3. BEHEPAN [Concomitant]
     Indication: VITAMIN B12 DEFICIENCY
     Dosage: UNK
     Dates: start: 20120113
  4. FOLACIN [Concomitant]
     Indication: FOLATE DEFICIENCY
     Dosage: UNK
     Dates: start: 20100113
  5. TENORMIN [Concomitant]
     Indication: HYPERTENSION
     Dosage: UNK
     Dates: start: 20091211
  6. NORMORIX MITE [Concomitant]
     Indication: HYPERTENSION
     Dosage: UNK
     Dates: start: 20110811
  7. LEVAXIN [Concomitant]
     Indication: HYPOTHYROIDISM
     Dosage: UNK
     Dates: start: 20100113
  8. TRYPTIZOL [Concomitant]
     Indication: NEURALGIA
     Dosage: UNK
     Dates: start: 20120405
  9. PRIMPERAN [Concomitant]
     Indication: NAUSEA
     Dosage: UNK
     Dates: start: 20120429
  10. ANDOLEX [Concomitant]
     Indication: ORAL PAIN
     Dosage: UNK
     Dates: start: 20120510
  11. ANDOLEX [Concomitant]
     Indication: STOMATITIS
  12. XYLOCAIN [Concomitant]
     Indication: ORAL PAIN
     Dosage: UNK
     Dates: start: 20120510
  13. DIMOR [Concomitant]
     Indication: DIARRHOEA
     Dosage: UNK
     Dates: start: 20120524
  14. LORATADINE [Concomitant]
     Dosage: UNK
     Dates: start: 20120607, end: 20120609
  15. CLAFORAN [Concomitant]
     Dosage: UNK
     Dates: start: 20120613, end: 20120614

REACTIONS (6)
  - Drug interaction [Unknown]
  - Stomatitis [Recovered/Resolved]
  - Rash maculo-papular [Recovered/Resolved]
  - General physical health deterioration [Recovered/Resolved]
  - Dehydration [Recovered/Resolved]
  - Pneumocystis jiroveci pneumonia [Recovered/Resolved]
